FAERS Safety Report 5867558-7 (Version None)
Quarter: 2008Q3

REPORT INFORMATION
  Report Type: 
  Country: None (occurrence: None)
  Receive Date: 20080902
  Receipt Date: 20071010
  Transmission Date: 20090109
  Serious: No
  Sender: FDA-Public Use
  Company Number: US-ABBOTT-07P-163-0420986-00

PATIENT
  Sex: Male
  Weight: 63.56 kg

DRUGS (21)
  1. DEPAKOTE ER [Suspect]
     Indication: CONVULSION
     Route: 048
     Dates: start: 20060101, end: 20061001
  2. DEPAKOTE ER [Suspect]
     Route: 048
     Dates: start: 20061001
  3. DEPAKOTE ER [Suspect]
     Indication: CONVULSION
     Route: 048
     Dates: start: 20061001
  4. CYCLOBENZAPRINE HCL [Concomitant]
     Indication: FIBROMYALGIA
     Route: 048
  5. AMITRIPTYLINE HCL [Concomitant]
     Indication: FIBROMYALGIA
     Route: 048
  6. ESCITALOPRAM OXALATE [Concomitant]
     Indication: ANXIETY
     Route: 048
  7. CLONAZEPAM [Concomitant]
     Indication: ANXIETY
     Route: 048
  8. LORAZEPAM [Concomitant]
     Indication: ANXIETY
     Route: 048
  9. FLUTICASONE PROPIONATE [Concomitant]
     Indication: HYPERSENSITIVITY
     Dosage: 12GM/110MCGM
     Route: 055
  10. FLUTICASONE PROPIONATE [Concomitant]
     Indication: ASTHMA
  11. TRIAMCINOLONE ACETONIDE [Concomitant]
     Indication: HYPERSENSITIVITY
     Route: 055
  12. TRIAMCINOLONE ACETONIDE [Concomitant]
     Indication: ASTHMA
  13. XOPENENX [Concomitant]
     Indication: HYPERSENSITIVITY
     Dosage: 3CC/1.25MG
     Route: 055
  14. XOPENENX [Concomitant]
     Indication: ASTHMA
  15. MONTELUKAST SODIUM [Concomitant]
     Indication: HYPERSENSITIVITY
     Route: 048
  16. MONTELUKAST SODIUM [Concomitant]
     Indication: ASTHMA
  17. RANITIDINE [Concomitant]
     Indication: HYPERCHLORHYDRIA
     Route: 048
  18. LANSOPRAZOLE [Concomitant]
     Indication: GASTROOESOPHAGEAL REFLUX DISEASE
     Route: 048
  19. METOCLOPRAMIDE [Concomitant]
     Indication: GASTROOESOPHAGEAL REFLUX DISEASE
     Route: 048
  20. CETIRIZINE HYDROCHLORIDE [Concomitant]
     Indication: HYPERSENSITIVITY
     Route: 048
  21. DARIFENACIN HYDROBROMIDE [Concomitant]
     Indication: HYPERTONIC BLADDER
     Route: 048

REACTIONS (1)
  - FATIGUE [None]
